FAERS Safety Report 12862287 (Version 1)
Quarter: 2016Q4

REPORT INFORMATION
  Report Type: Spontaneous
  Country: US (occurrence: US)
  Receive Date: 20161018
  Receipt Date: 20161018
  Transmission Date: 20170207
  Serious: Yes (Life-Threatening, Hospitalization)
  Sender: FDA-Public Use
  Company Number: None

PATIENT
  Age: 69 Year
  Sex: Female
  Weight: 64 kg

DRUGS (1)
  1. BLEOMYCIN [Suspect]
     Active Substance: BLEOMYCIN SULFATE
     Dates: start: 20160801, end: 20161008

REACTIONS (6)
  - Pneumonia [None]
  - Toxicity to various agents [None]
  - Dyspnoea [None]
  - Therapy non-responder [None]
  - Hypoxia [None]
  - Lung disorder [None]

NARRATIVE: CASE EVENT DATE: 20161008
